FAERS Safety Report 5206246-7 (Version None)
Quarter: 2007Q1

REPORT INFORMATION
  Report Type: 
  Country: None (occurrence: None)
  Receive Date: 20070111
  Receipt Date: 20070104
  Transmission Date: 20070707
  Serious: Yes (Hospitalization, Other)
  Sender: FDA-Public Use
  Company Number: CH-SHR-CH-2007-000595

PATIENT
  Age: 88 Year
  Sex: Male

DRUGS (5)
  1. SOTALOL HYDROCHLORIDE [Suspect]
     Dosage: 80 MG, 1X/DAY
     Route: 048
     Dates: end: 20060706
  2. MADOPAR [Suspect]
     Dosage: 375 MG, 3X/DAY
     Route: 048
  3. SERMION [Suspect]
     Dosage: 30 MG, 1X/DAY
     Route: 048
  4. SINTROM [Concomitant]
     Dosage: UNK, UNK
     Route: 048
  5. SERESTA [Concomitant]
     Route: 048

REACTIONS (3)
  - DRUG INTERACTION [None]
  - FALL [None]
  - HYPOTENSION [None]
